FAERS Safety Report 15430979 (Version 1)
Quarter: 2018Q3

REPORT INFORMATION
  Report Type: Spontaneous
  Country: US (occurrence: US)
  Receive Date: 20180926
  Receipt Date: 20180926
  Transmission Date: 20181010
  Serious: No
  Sender: FDA-Public Use
  Company Number: US-INDIVIOR LIMITED-INDV-111122-2018

PATIENT
  Age: 44 Year
  Sex: Female

DRUGS (8)
  1. VIIBRYD [Concomitant]
     Active Substance: VILAZODONE HYDROCHLORIDE
     Indication: PANIC DISORDER
     Dosage: UNK
     Route: 065
  2. SUBOXONE [Suspect]
     Active Substance: BUPRENORPHINE HYDROCHLORIDE\NALOXONE HYDROCHLORIDE
     Indication: PAIN MANAGEMENT
     Dosage: UNK, HIGHER DOSE AND CUTTING THE FILMS WHEN GOING UP
     Route: 060
     Dates: start: 20180205
  3. SUBOXONE [Suspect]
     Active Substance: BUPRENORPHINE HYDROCHLORIDE\NALOXONE HYDROCHLORIDE
     Dosage: 12 MG, UNK
     Route: 060
  4. SUBOXONE [Suspect]
     Active Substance: BUPRENORPHINE HYDROCHLORIDE\NALOXONE HYDROCHLORIDE
     Dosage: 12 MG, UNK
     Route: 060
  5. SUBOXONE [Suspect]
     Active Substance: BUPRENORPHINE HYDROCHLORIDE\NALOXONE HYDROCHLORIDE
     Dosage: 6 MG, DAILY (ONE 4 MG FILM IN THE MORNING AND ONE 2 MG FILM IN THE EVENING)
     Route: 060
     Dates: end: 2018
  6. SUBOXONE [Suspect]
     Active Substance: BUPRENORPHINE HYDROCHLORIDE\NALOXONE HYDROCHLORIDE
     Dosage: 6 MG, DAILY (ONE 4 MG FILM IN MORNING AND ONE 2 MG FILM IN THE EVENING)
     Route: 060
  7. SUBOXONE [Suspect]
     Active Substance: BUPRENORPHINE HYDROCHLORIDE\NALOXONE HYDROCHLORIDE
     Indication: PAIN MANAGEMENT
     Dosage: UNK, HIGHER DOSE AND CUTTING THE FILMS WHEN GOING UP
     Route: 060
     Dates: start: 201802
  8. BUPRENORPHINE. [Suspect]
     Active Substance: BUPRENORPHINE
     Indication: PAIN MANAGEMENT
     Dosage: 2MG THREE TIMES PER DAY
     Route: 065
     Dates: start: 20180525

REACTIONS (17)
  - Inflammatory marker increased [Unknown]
  - Arthritis [Unknown]
  - Arthralgia [Not Recovered/Not Resolved]
  - Chills [Not Recovered/Not Resolved]
  - Wrong technique in product usage process [Recovered/Resolved]
  - Pain [Unknown]
  - Oedema peripheral [Not Recovered/Not Resolved]
  - Inappropriate schedule of drug administration [Not Recovered/Not Resolved]
  - Fluid retention [Not Recovered/Not Resolved]
  - Intentional underdose [Recovered/Resolved]
  - Joint swelling [Not Recovered/Not Resolved]
  - Vasodilatation [Not Recovered/Not Resolved]
  - Urine output decreased [Unknown]
  - Pain in extremity [Not Recovered/Not Resolved]
  - Drug withdrawal syndrome [Recovered/Resolved]
  - Pyrexia [Not Recovered/Not Resolved]
  - Weight decreased [Not Recovered/Not Resolved]

NARRATIVE: CASE EVENT DATE: 201802
